FAERS Safety Report 25868840 (Version 1)
Quarter: 2025Q3

REPORT INFORMATION
  Report Type: Spontaneous
  Country: US (occurrence: None)
  Receive Date: 20250930
  Receipt Date: 20250930
  Transmission Date: 20251020
  Serious: Yes (Hospitalization)
  Sender: FDA-CTU
  Company Number: None

PATIENT
  Age: 84 Year
  Sex: Female

DRUGS (1)
  1. ADEMPAS [Suspect]
     Active Substance: RIOCIGUAT
     Indication: Pulmonary hypertension
     Dosage: 0.5MG TID ORAL ?
     Route: 048
     Dates: start: 20250606

REACTIONS (3)
  - Constipation [None]
  - Abdominal pain [None]
  - Syncope [None]

NARRATIVE: CASE EVENT DATE: 20250914
